FAERS Safety Report 16198929 (Version 1)
Quarter: 2019Q2

REPORT INFORMATION
  Report Type: Spontaneous
  Country: GB (occurrence: GB)
  Receive Date: 20190415
  Receipt Date: 20190415
  Transmission Date: 20190711
  Serious: Yes (Hospitalization, Other)
  Sender: FDA-Public Use
  Company Number: GB-MYLANLABS-2019M1034856

PATIENT
  Age: 34 Year
  Sex: Female
  Weight: 35 kg

DRUGS (6)
  1. CITALOPRAM [Suspect]
     Active Substance: CITALOPRAM HYDROBROMIDE
     Indication: DEPRESSED MOOD
     Dosage: 40 MILLIGRAM, QD
     Route: 048
  2. CYCLIZINE HYDROCHLORIDE [Concomitant]
     Active Substance: CYCLIZINE HYDROCHLORIDE
     Dosage: UNK
  3. NUROFEN PLUS [Suspect]
     Active Substance: CODEINE PHOSPHATE\IBUPROFEN
     Indication: PRODUCT USED FOR UNKNOWN INDICATION
     Dosage: 32 DOSAGE FORM, QD
     Route: 048
  4. MEBEVERINE [Concomitant]
     Active Substance: MEBEVERINE
     Dosage: UNK
  5. FERROUS FUMARATE [Concomitant]
     Active Substance: FERROUS FUMARATE
     Dosage: UNK
  6. MACROGOL 3350 [Concomitant]
     Active Substance: POLYETHYLENE GLYCOL 3350
     Dosage: UNK

REACTIONS (4)
  - Haematemesis [Unknown]
  - Upper gastrointestinal haemorrhage [Recovered/Resolved with Sequelae]
  - Drug dependence [Unknown]
  - Abdominal pain [Unknown]
